FAERS Safety Report 14970002 (Version 1)
Quarter: 2018Q2

REPORT INFORMATION
  Report Type: Spontaneous
  Country: US (occurrence: US)
  Receive Date: 20180604
  Receipt Date: 20180604
  Transmission Date: 20180711
  Serious: Yes (Other)
  Sender: FDA-Public Use
  Company Number: US-D.O.R.C. INTERNATIONAL, B.V.-2048954

PATIENT
  Age: 80 Year

DRUGS (1)
  1. VISIONBLUE [Suspect]
     Active Substance: TRYPAN BLUE
     Indication: CATARACT
     Route: 031
     Dates: start: 20160510, end: 20160510

REACTIONS (1)
  - Corneal oedema [Unknown]

NARRATIVE: CASE EVENT DATE: 20160510
